FAERS Safety Report 11652820 (Version 1)
Quarter: 2015Q4

REPORT INFORMATION
  Report Type: Spontaneous
  Country: BR (occurrence: BR)
  Receive Date: 20151022
  Receipt Date: 20151022
  Transmission Date: 20160304
  Serious: Yes (Other)
  Sender: FDA-Public Use
  Company Number: BR-ASTRAZENECA-2015SF01270

PATIENT
  Age: 60 Year
  Sex: Male

DRUGS (9)
  1. INSULIN [Concomitant]
     Active Substance: INSULIN NOS
     Dosage: NPH 20 + 10,
  2. GLIMEPIRIDE. [Concomitant]
     Active Substance: GLIMEPIRIDE
  3. SIMVASTATIN. [Concomitant]
     Active Substance: SIMVASTATIN
     Indication: DYSLIPIDAEMIA
  4. METFORMIN [Suspect]
     Active Substance: METFORMIN HYDROCHLORIDE
     Dosage: 850 MG 8/8 H, NON-AZ PRODUCT
     Route: 065
  5. HCTZ [Suspect]
     Active Substance: HYDROCHLOROTHIAZIDE
     Dosage: NON-AZ PRODUCT
     Route: 065
  6. AMLODIPINE [Concomitant]
     Active Substance: AMLODIPINE BESYLATE
     Dosage: NON-AZ PRODUCT
  7. FORXIGA [Suspect]
     Active Substance: DAPAGLIFLOZIN
     Route: 048
  8. METFORMIN [Suspect]
     Active Substance: METFORMIN HYDROCHLORIDE
     Dosage: GLIFAGE XR 2G,  NON-AZ PRODUCT
     Route: 065
  9. LOSARTAN. [Concomitant]
     Active Substance: LOSARTAN
     Dosage: 50MG 12/12H,

REACTIONS (1)
  - Hypertension [Unknown]
